FAERS Safety Report 5874995-3 (Version None)
Quarter: 2008Q3

REPORT INFORMATION
  Report Type: 
  Country: None (occurrence: None)
  Receive Date: 20080908
  Receipt Date: 20080908
  Transmission Date: 20090109
  Serious: Yes (Life-Threatening, Hospitalization)
  Sender: FDA-Public Use
  Company Number: None

PATIENT
  Age: 18 Year
  Sex: Female
  Weight: 56.6996 kg

DRUGS (1)
  1. LOW-OGESTREL-21 [Suspect]
     Indication: CONTRACEPTION
     Dosage: 1 TABLET ONCE A DAY PO
     Route: 048
     Dates: start: 20080305, end: 20080817

REACTIONS (2)
  - CEREBRAL VENOUS THROMBOSIS [None]
  - CONVULSION [None]
